FAERS Safety Report 23974126 (Version 3)
Quarter: 2024Q3

REPORT INFORMATION
  Report Type: Spontaneous
  Country: US (occurrence: US)
  Receive Date: 20240614
  Receipt Date: 20240725
  Transmission Date: 20241017
  Serious: Yes (Other)
  Sender: MERCK
  Company Number: US-009507513-2406USA002171

PATIENT
  Age: 70 Year
  Sex: Female

DRUGS (21)
  1. KEYTRUDA [Suspect]
     Active Substance: PEMBROLIZUMAB
     Indication: Rectal cancer
     Dosage: UNK, Q3W
     Dates: start: 20240423, end: 20240423
  2. KEYTRUDA [Suspect]
     Active Substance: PEMBROLIZUMAB
     Dosage: UNK, Q3W
     Dates: start: 20240507, end: 20240507
  3. KEYTRUDA [Suspect]
     Active Substance: PEMBROLIZUMAB
     Dosage: UNK, Q3W
     Dates: start: 20240528, end: 20240528
  4. LONSURF [Suspect]
     Active Substance: TIPIRACIL HYDROCHLORIDE\TRIFLURIDINE
     Indication: Rectal cancer
     Dosage: 60 MILLIGRAM, TWICE DAILY ON DAYS 1-5 AND 8-12 OF EACH 28 DAY CYCLE
     Route: 048
     Dates: start: 20240112, end: 2024
  5. LONSURF [Suspect]
     Active Substance: TIPIRACIL HYDROCHLORIDE\TRIFLURIDINE
     Dosage: 60 MILLIGRAM, TWICE DAILY ON DAYS 1-5 AND 15-19 OF EACH 28 DAY CYCLE
     Route: 048
     Dates: start: 2024, end: 20240408
  6. BENADRYL [Concomitant]
     Active Substance: DIPHENHYDRAMINE HYDROCHLORIDE
  7. FUROSEMIDE [Concomitant]
     Active Substance: FUROSEMIDE
  8. HYDROCHLOROTHIAZIDE [Concomitant]
     Active Substance: HYDROCHLOROTHIAZIDE
  9. HYDROMORPHONE [Concomitant]
     Active Substance: HYDROMORPHONE
     Dosage: ER
  10. IBUPROFEN [Concomitant]
     Active Substance: IBUPROFEN
  11. LOSARTAN POTASSIUM [Concomitant]
     Active Substance: LOSARTAN POTASSIUM
  12. VITAMINS NOS [Concomitant]
     Active Substance: VITAMINS
  13. ONDANSETRON [Concomitant]
     Active Substance: ONDANSETRON
     Route: 048
  14. POTASSIUM [Concomitant]
     Active Substance: POTASSIUM
  15. PROCHLORPERAZINE [Concomitant]
     Active Substance: PROCHLORPERAZINE
  16. TRIAMCINOLONE [Concomitant]
     Active Substance: TRIAMCINOLONE
     Dosage: CRE
  17. TYLENOL [Concomitant]
     Active Substance: ACETAMINOPHEN
  18. VITAMIN D2 [Concomitant]
     Active Substance: ERGOCALCIFEROL
  19. GUAIFENESIN [Concomitant]
     Active Substance: GUAIFENESIN
  20. KLOR-CON [Concomitant]
     Active Substance: POTASSIUM CHLORIDE
  21. LOPERAMIDE HYDROCHLORIDE [Concomitant]
     Active Substance: LOPERAMIDE HYDROCHLORIDE

REACTIONS (4)
  - Malignant neoplasm progression [Unknown]
  - Brain fog [Unknown]
  - Hepatic steatosis [Unknown]
  - Inappropriate schedule of product administration [Unknown]

NARRATIVE: CASE EVENT DATE: 20240101
